FAERS Safety Report 20349284 (Version 2)
Quarter: 2022Q1

REPORT INFORMATION
  Report Type: Spontaneous
  Country: DE (occurrence: DE)
  Receive Date: 20220119
  Receipt Date: 20220228
  Transmission Date: 20220423
  Serious: Yes (Other)
  Sender: FDA-Public Use
  Company Number: DE-NOVARTISPH-NVSC2022DE009352

PATIENT
  Age: 64 Year
  Sex: Female

DRUGS (7)
  1. KISQALI [Interacting]
     Active Substance: RIBOCICLIB
     Indication: Breast cancer metastatic
     Dosage: UNK (ON DAY 1-21)
     Route: 048
     Dates: start: 201912
  2. KISQALI [Interacting]
     Active Substance: RIBOCICLIB
     Indication: Metastases to lung
     Dosage: 400 MG QD, ON DAY 1-21
     Route: 048
  3. KISQALI [Interacting]
     Active Substance: RIBOCICLIB
     Indication: Metastases to bone
  4. EZETIMIBE\ROSUVASTATIN [Interacting]
     Active Substance: EZETIMIBE\ROSUVASTATIN
     Indication: Lipids increased
     Dosage: UNK
     Route: 065
     Dates: start: 202201, end: 202201
  5. BISOPROLOL [Concomitant]
     Active Substance: BISOPROLOL
     Indication: Product used for unknown indication
     Dosage: 5 MG
     Route: 048
  6. ASPIRIN [Concomitant]
     Active Substance: ASPIRIN
     Indication: Product used for unknown indication
     Dosage: 100 MG
     Route: 048
  7. ANASTROZOLE [Concomitant]
     Active Substance: ANASTROZOLE
     Indication: Product used for unknown indication
     Dosage: 1 MG
     Route: 048

REACTIONS (3)
  - Neutropenia [Not Recovered/Not Resolved]
  - Drug interaction [Recovering/Resolving]
  - Myalgia [Recovering/Resolving]

NARRATIVE: CASE EVENT DATE: 20201201
